FAERS Safety Report 8607602-7 (Version None)
Quarter: 2012Q3

REPORT INFORMATION
  Report Type: 
  Country: None (occurrence: None)
  Receive Date: 20120821
  Receipt Date: 20120813
  Transmission Date: 20120928
  Serious: Yes (Hospitalization)
  Sender: FDA-Public Use
  Company Number: US-US-EMD SERONO, INC.-7154721

PATIENT
  Sex: Female

DRUGS (4)
  1. REBIF [Suspect]
     Indication: PRODUCT USED FOR UNKNOWN INDICATION
     Route: 058
     Dates: start: 20100628
  2. SEIZURE MEDICATION [Concomitant]
     Indication: CONVULSION
  3. ANXIETY MEDICATION [Concomitant]
     Indication: ANXIETY
  4. SLEEP MEDICATION [Concomitant]
     Indication: SLEEP DISORDER

REACTIONS (1)
  - VULVOVAGINAL MYCOTIC INFECTION [None]
